FAERS Safety Report 8729764 (Version 2)
Quarter: 2012Q4

REPORT INFORMATION
  Report Type: Report from Study
  Country: AU (occurrence: AU)
  Receive Date: 20120817
  Receipt Date: 20121001
  Transmission Date: 20130627
  Serious: Yes (Hospitalization)
  Sender: FDA-Public Use
  Company Number: AU-GILEAD-2012-0059497

PATIENT
  Age: 66 Year
  Sex: Female

DRUGS (14)
  1. AZTREONAM LYSINE [Suspect]
     Indication: BRONCHIECTASIS
     Dosage: 75 mg, TID
     Route: 055
     Dates: start: 20120626, end: 20120724
  2. SERETIDE [Concomitant]
     Indication: BRONCHIECTASIS
     Dosage: 250/25 mg, BID
     Route: 055
  3. SPIRIVA [Concomitant]
     Indication: BRONCHIECTASIS
     Dosage: 18 ?g, UNK
     Route: 055
  4. VENTOLIN                           /00139501/ [Concomitant]
     Indication: BRONCHIECTASIS
     Dosage: 5 mg, BID
     Route: 055
     Dates: end: 20120708
  5. VENTOLIN                           /00139501/ [Concomitant]
     Indication: DYSPNOEA
     Dosage: 5 mg, QID
     Dates: start: 20120708
  6. PANADOL OSTEO [Concomitant]
     Indication: ARTHRITIS
     Dosage: 665 mg, prn
     Route: 048
  7. LIPITOR [Concomitant]
     Indication: HYPERCHOLESTEROLAEMIA
     Dosage: 20 mg, QD
     Route: 048
  8. NEXIUM                             /01479302/ [Concomitant]
     Indication: GASTROOESOPHAGEAL REFLUX DISEASE
     Dosage: 40 mg, QD
     Route: 048
  9. PREDNISONE [Concomitant]
     Indication: DYSPNOEA
     Dosage: 50 mg, QD
     Route: 048
     Dates: start: 20120708, end: 20120712
  10. PREDNISONE [Concomitant]
     Dosage: 37.5 mg, UNK
     Route: 048
     Dates: start: 20120713, end: 20120717
  11. PREDNISONE [Concomitant]
     Dosage: 25 mg, QD
     Route: 048
     Dates: start: 20120718, end: 20120725
  12. ATROVENT [Concomitant]
     Indication: DYSPNOEA
     Dosage: 250 ?g, QID
     Route: 055
     Dates: start: 20120708
  13. AMOXICILLIN [Concomitant]
     Indication: PNEUMONIA
     Dosage: 250 mg, BID
     Route: 048
     Dates: start: 20120718, end: 20120728
  14. ROXITHROMYCIN [Concomitant]
     Indication: PNEUMONIA
     Dosage: 300 mg, QD
     Route: 048
     Dates: start: 20120718, end: 20120728

REACTIONS (1)
  - Pneumonia [Recovered/Resolved with Sequelae]
